FAERS Safety Report 25636684 (Version 1)
Quarter: 2025Q3

REPORT INFORMATION
  Report Type: Spontaneous
  Country: GB (occurrence: GB)
  Receive Date: 20250804
  Receipt Date: 20250804
  Transmission Date: 20251020
  Serious: Yes (Other)
  Sender: JOHNSON AND JOHNSON
  Company Number: GB-JNJFOC-20250733988

PATIENT
  Age: 59 Year
  Sex: Male

DRUGS (3)
  1. PALIPERIDONE PALMITATE [Suspect]
     Active Substance: PALIPERIDONE PALMITATE
     Indication: Product used for unknown indication
     Route: 030
  2. PALIPERIDONE PALMITATE [Suspect]
     Active Substance: PALIPERIDONE PALMITATE
  3. PALIPERIDONE PALMITATE [Suspect]
     Active Substance: PALIPERIDONE PALMITATE

REACTIONS (9)
  - Loss of consciousness [Unknown]
  - Syncope [Unknown]
  - Hypersomnia [Unknown]
  - Orthostatic hypotension [Unknown]
  - Communication disorder [Unknown]
  - Abnormal behaviour [Unknown]
  - Trance [Unknown]
  - Tremor [Unknown]
  - Dizziness [Unknown]
